FAERS Safety Report 25905855 (Version 1)
Quarter: 2025Q4

REPORT INFORMATION
  Report Type: Spontaneous
  Country: EU (occurrence: EU)
  Receive Date: 20251010
  Receipt Date: 20251010
  Transmission Date: 20260118
  Serious: Yes (Death, Hospitalization, Other)
  Sender: AUROBINDO
  Company Number: EU-DCGMA-25205866

PATIENT
  Age: 84 Year
  Sex: Female
  Weight: 70 kg

DRUGS (5)
  1. PRASUGREL [Suspect]
     Active Substance: PRASUGREL
     Indication: Arterial stent insertion
     Dosage: 10 MILLIGRAM, ONCE A DAY (DAILY DOSE: 10 MG EVERY 1 DAY)
     Route: 048
     Dates: start: 202411, end: 20250824
  2. AMITRIPTYLINE [Concomitant]
     Active Substance: AMITRIPTYLINE
     Indication: Analgesic therapy
     Dosage: 2 DOSAGE FORM, ONCE A DAY (20 MGDAILY DOSE: 2 {DF} EVERY 1 DAY)
     Route: 065
     Dates: start: 202408
  3. BISOPROLOL [Concomitant]
     Active Substance: BISOPROLOL
     Indication: Hypertension
     Dosage: 2 DOSAGE FORM, ONCE A DAY (5MGDAILY DOSE: 2 {DF} EVERY 1 DAY)
     Route: 048
     Dates: start: 202408
  4. BENAZEPRIL AND HYDROCHLOROTHIAZIDE [Concomitant]
     Active Substance: BENAZEPRIL HYDROCHLORIDE\HYDROCHLOROTHIAZIDE
     Indication: Hypertension
     Dosage: 0.5 DOSAGE FORM, ONCE A DAY (20/25MGDAILY DOSE: 0.5 {DF} EVERY 1 DAY)
     Route: 048
     Dates: start: 202502
  5. HYDROMORPHONE [Concomitant]
     Active Substance: HYDROMORPHONE
     Indication: Analgesic therapy
     Dosage: 2 DOSAGE FORM, ONCE A DAY (4 MGDAILY DOSE: 2 {DF} EVERY 1 DAY)
     Route: 065
     Dates: start: 20250226

REACTIONS (1)
  - Cerebellar haemorrhage [Fatal]

NARRATIVE: CASE EVENT DATE: 20250825
